FAERS Safety Report 4350160-6 (Version None)
Quarter: 2004Q2

REPORT INFORMATION
  Report Type: 
  Country: None (occurrence: None)
  Receive Date: 20040428
  Receipt Date: 20040428
  Transmission Date: 20050107
  Serious: Yes (Hospitalization)
  Sender: FDA-Public Use
  Company Number: None

PATIENT
  Age: 54 Year
  Sex: Female
  Weight: 61.6892 kg

DRUGS (8)
  1. PHENYTOIN [Suspect]
     Indication: CONVULSION
     Dosage: 400 MG Q HS +?
  2. METHADONE HCL [Concomitant]
  3. LISINOPRIL [Concomitant]
  4. DILANTIN [Concomitant]
  5. CATAPRES [Concomitant]
  6. VALTREX [Concomitant]
  7. DARVOCETS [Concomitant]
  8. RANIDITINE [Concomitant]

REACTIONS (3)
  - BALANCE DISORDER [None]
  - DIZZINESS [None]
  - MEDICATION ERROR [None]
